FAERS Safety Report 10163578 (Version 2)
Quarter: 2014Q2

REPORT INFORMATION
  Report Type: Spontaneous
  Country: AT (occurrence: AT)
  Receive Date: 20140509
  Receipt Date: 20140509
  Transmission Date: 20141212
  Serious: Yes (Death)
  Sender: FDA-Public Use
  Company Number: AT-BANPHARM-20142651

PATIENT
  Age: 82 Year
  Sex: Male

DRUGS (1)
  1. ZONISAMIDE UNKNOWN PRODUCT [Suspect]
     Indication: EPILEPSY

REACTIONS (3)
  - Pancreatitis [Fatal]
  - Renal failure [Fatal]
  - Circulatory collapse [Fatal]
